FAERS Safety Report 5556221-8 (Version None)
Quarter: 2007Q4

REPORT INFORMATION
  Report Type: 
  Country: None (occurrence: None)
  Receive Date: 20071205
  Receipt Date: 20071112
  Transmission Date: 20080405
  Serious: Yes (Hospitalization)
  Sender: FDA-Public Use
  Company Number: WAES 0711MEX00015

PATIENT
  Age: 77 Year
  Sex: Male

DRUGS (1)
  1. COZAAR [Suspect]
     Indication: CARDIAC FAILURE
     Dosage: PO
     Route: 048
     Dates: start: 20031217, end: 20050620

REACTIONS (1)
  - RESPIRATORY FAILURE [None]
